FAERS Safety Report 7588316-1 (Version None)
Quarter: 2011Q3

REPORT INFORMATION
  Report Type: 
  Country: None (occurrence: None)
  Receive Date: 20110705
  Receipt Date: 20091104
  Transmission Date: 20111222
  Serious: Yes (Death, Other)
  Sender: FDA-Public Use
  Company Number: US-BAYER-200939275NA

PATIENT
  Age: 64 Year
  Sex: Male
  Weight: 77.098 kg

DRUGS (18)
  1. CIPROFLOXACIN [Concomitant]
  2. GLUCOPHAGE [Concomitant]
     Indication: PRODUCT USED FOR UNKNOWN INDICATION
     Dosage: 500 MG, UNK
     Route: 048
     Dates: start: 19970101
  3. GLYBURIDE [Concomitant]
     Indication: PRODUCT USED FOR UNKNOWN INDICATION
     Dosage: 5 MG, UNK
     Route: 048
     Dates: start: 19970101
  4. PLAVIX [Concomitant]
     Indication: PRODUCT USED FOR UNKNOWN INDICATION
     Dosage: 75 MG, QD
     Route: 048
     Dates: start: 20050222
  5. ANCEF [Concomitant]
     Dosage: 2 G, UNK
     Route: 042
     Dates: start: 20051229, end: 20051229
  6. TRASYLOL [Suspect]
     Indication: PRODUCT USED FOR UNKNOWN INDICATION
     Dosage: 200ML LOADING DOSE FOLLOWED BY 50 ML/HOUR INFU
     Route: 042
     Dates: start: 20051229, end: 20051229
  7. METOPROLOL TARTRATE [Concomitant]
  8. EPOGEN [Concomitant]
     Indication: ANAEMIA
  9. ARANESP [Concomitant]
     Indication: ANAEMIA
  10. IBUPROFEN [Concomitant]
  11. FENTANYL [Concomitant]
     Dosage: 50 ?G, AS NEEDED
     Route: 042
     Dates: start: 20051229, end: 20051229
  12. SOLU-MEDROL [Concomitant]
     Dosage: 500 MG, UNK
     Route: 042
     Dates: start: 20051229, end: 20051229
  13. IRON [IRON] [Concomitant]
     Route: 042
  14. ACETYLSALICYLIC ACID SRT [Concomitant]
     Dosage: 325 MG, QD
     Route: 048
  15. LASIX [Concomitant]
     Dosage: 60 MG, UNK
     Route: 042
     Dates: start: 20051229, end: 20051229
  16. BLOOD TRANSFUSION, AUXILIARY PRODUCTS [Concomitant]
     Dosage: UNK
     Dates: start: 20081201
  17. BLOOD TRANSFUSION, AUXILIARY PRODUCTS [Concomitant]
     Dosage: UNK
     Dates: start: 20081001
  18. PROPOFOL [Concomitant]
     Dosage: UNK
     Route: 042
     Dates: start: 20051229, end: 20051229

REACTIONS (7)
  - DEATH [None]
  - RENAL FAILURE [None]
  - PAIN [None]
  - RENAL DISORDER [None]
  - EMOTIONAL DISTRESS [None]
  - INJURY [None]
  - ANXIETY [None]
